FAERS Safety Report 8047946 (Version 3)
Quarter: 2015Q2

REPORT INFORMATION
  Report Type: Spontaneous
  Country: US (occurrence: US)
  Receive Date: 20110721
  Receipt Date: 20150407
  Transmission Date: 20150821
  Serious: Yes (Hospitalization)
  Sender: FDA-Public Use
  Company Number: US-BAYER-2011-062461

PATIENT
  Age: 46 Year
  Sex: Female
  Weight: 82.99 kg

DRUGS (6)
  1. LEXAPRO [Concomitant]
     Active Substance: ESCITALOPRAM OXALATE
     Dosage: 5 MG, UNK
  2. LORAZEPAM. [Concomitant]
     Active Substance: LORAZEPAM
     Dosage: 0.1 MG, UNK
  3. YAZ [Suspect]
     Active Substance: DROSPIRENONE\ETHINYL ESTRADIOL
     Indication: HORMONE SUPPRESSION THERAPY
     Dosage: UNK
     Dates: start: 200804, end: 200907
  4. YASMIN [Suspect]
     Active Substance: DROSPIRENONE\ETHINYL ESTRADIOL
     Indication: HORMONE SUPPRESSION THERAPY
     Dosage: UNK
     Dates: start: 200401, end: 2005
  5. SYNTHROID [Concomitant]
     Active Substance: LEVOTHYROXINE SODIUM
     Indication: THYROID DISORDER
     Dosage: 137 MG, UNK
  6. LUPRON [Concomitant]
     Active Substance: LEUPROLIDE ACETATE
     Dosage: UNK
     Dates: start: 20050110

REACTIONS (7)
  - Fear [None]
  - Emotional distress [None]
  - Ischaemic stroke [None]
  - Anxiety [None]
  - Transient ischaemic attack [Recovering/Resolving]
  - Pain [None]
  - Psychological trauma [None]

NARRATIVE: CASE EVENT DATE: 200907
